FAERS Safety Report 6769398-3 (Version None)
Quarter: 2010Q2

REPORT INFORMATION
  Report Type: 
  Country: None (occurrence: None)
  Receive Date: 20100615
  Receipt Date: 20100603
  Transmission Date: 20101027
  Serious: Yes (Hospitalization)
  Sender: FDA-Public Use
  Company Number: FR-PFIZER INC-2010069549

PATIENT
  Age: 54 Year
  Sex: Female

DRUGS (16)
  1. NEURONTIN [Suspect]
     Indication: PREMEDICATION
     Dosage: 900 MG
     Route: 048
     Dates: start: 20100516, end: 20100516
  2. NEURONTIN [Suspect]
     Dosage: 600 MG
     Route: 048
     Dates: start: 20100517, end: 20100517
  3. PROPOFOL ^FRESENIUS^ [Suspect]
     Indication: ANAESTHESIA
     Dosage: 800 MG
     Route: 042
     Dates: start: 20100517, end: 20100517
  4. ATRACURIUM [Suspect]
     Indication: ANAESTHESIA
     Dosage: 40 MG
     Route: 042
     Dates: start: 20100517, end: 20100517
  5. ULTIVA [Suspect]
     Indication: ANAESTHESIA
     Dosage: 2 MG
     Route: 042
     Dates: start: 20100517, end: 20100517
  6. CLAMOXYL [Suspect]
     Indication: ANAESTHESIA
     Dosage: 3 G
     Route: 042
     Dates: start: 20100517, end: 20100517
  7. METRONIDAZOLE [Suspect]
     Indication: ANAESTHESIA
     Dosage: 1 G
     Route: 042
     Dates: start: 20100517, end: 20100517
  8. NORMACOL [Suspect]
     Indication: PREMEDICATION
     Dosage: UNK
     Route: 054
     Dates: start: 20100516, end: 20100516
  9. MORPHINE [Suspect]
     Indication: ANAESTHESIA
     Dosage: 5 MG
     Route: 042
     Dates: start: 20100517, end: 20100517
  10. POVIDONE-IODINE [Suspect]
     Indication: INFECTION PROPHYLAXIS
     Dosage: UNK
     Route: 003
     Dates: start: 20100517, end: 20100517
  11. NAROPIN [Suspect]
     Dosage: UNK
     Dates: start: 20100517, end: 20100517
  12. DROPERIDOL [Suspect]
     Dosage: UNK
     Route: 042
     Dates: start: 20100517, end: 20100517
  13. LOVENOX [Suspect]
     Indication: PREMEDICATION
     Dosage: 1 DF
     Route: 058
     Dates: start: 20100516, end: 20100517
  14. KETAMINE HCL [Suspect]
     Dosage: UNK
     Route: 042
     Dates: start: 20100517, end: 20100518
  15. ZOLPIDEM [Concomitant]
     Dosage: UNK
  16. DOLIPRANE [Concomitant]
     Dosage: 500 MG, UNK

REACTIONS (4)
  - HAEMATURIA [None]
  - LYMPHOPENIA [None]
  - OLIGURIA [None]
  - RENAL FAILURE ACUTE [None]
